FAERS Safety Report 5795208-7 (Version None)
Quarter: 2008Q2

REPORT INFORMATION
  Report Type: 
  Country: None (occurrence: None)
  Receive Date: 20080630
  Receipt Date: 20080619
  Transmission Date: 20081010
  Serious: Yes (Hospitalization)
  Sender: FDA-Public Use
  Company Number: US-KINGPHARMUSA00001-K200800708

PATIENT

DRUGS (5)
  1. ALTACE [Suspect]
     Indication: HYPERTENSION
     Dosage: UNK, UNK
     Route: 048
     Dates: start: 20081018
  2. LASIX [Suspect]
     Indication: OEDEMA
     Route: 048
     Dates: start: 20061018
  3. BISOPROLOL FUMARATE [Suspect]
     Indication: CARDIAC FAILURE
     Route: 048
     Dates: start: 20061018
  4. ALDACTONE [Suspect]
     Indication: HYPERTENSION
     Route: 048
     Dates: start: 20061018
  5. PREVISCAN                          /00789001/ [Suspect]
     Route: 048
     Dates: start: 20061018

REACTIONS (6)
  - ABDOMINAL PAIN [None]
  - BLOOD AMYLASE INCREASED [None]
  - DEHYDRATION [None]
  - DIARRHOEA [None]
  - PANCREATITIS ACUTE [None]
  - VOMITING [None]
